FAERS Safety Report 5776107-3 (Version None)
Quarter: 2008Q2

REPORT INFORMATION
  Report Type: 
  Country: None (occurrence: None)
  Receive Date: 20080613
  Receipt Date: 20080602
  Transmission Date: 20081010
  Serious: Yes (Hospitalization)
  Sender: FDA-Public Use
  Company Number: 2008BI007986

PATIENT
  Age: 60 Year
  Sex: Female

DRUGS (1)
  1. AVONEX [Suspect]
     Indication: MULTIPLE SCLEROSIS
     Dosage: 30 UG QW IM
     Route: 030
     Dates: start: 20071106

REACTIONS (5)
  - FALL [None]
  - IMPAIRED HEALING [None]
  - LOWER LIMB FRACTURE [None]
  - PATHOLOGICAL FRACTURE [None]
  - ROAD TRAFFIC ACCIDENT [None]
